FAERS Safety Report 13307866 (Version 2)
Quarter: 2017Q1

REPORT INFORMATION
  Report Type: Spontaneous
  Country: DE (occurrence: DE)
  Receive Date: 20170308
  Receipt Date: 20170330
  Transmission Date: 20170428
  Serious: Yes (Other)
  Sender: FDA-Public Use
  Company Number: DE-ALLERGAN-1708698US

PATIENT
  Age: 79 Year
  Sex: Male

DRUGS (1)
  1. TRIPTORELIN PAMOATE - BP [Suspect]
     Active Substance: TRIPTORELIN PAMOATE
     Indication: PROSTATE CANCER
     Dosage: 11.25 MG, SINGLE
     Route: 030
     Dates: start: 20170217, end: 20170217

REACTIONS (19)
  - Burning sensation [Unknown]
  - Tongue coated [Unknown]
  - Sleep disorder [Unknown]
  - Pallor [Unknown]
  - Dry mouth [Unknown]
  - Swollen tongue [Not Recovered/Not Resolved]
  - Weight decreased [Unknown]
  - Skin haemorrhage [Not Recovered/Not Resolved]
  - Paraesthesia [Unknown]
  - Pain [Unknown]
  - Gait disturbance [Unknown]
  - Cough [Unknown]
  - Dysphagia [Unknown]
  - Malaise [Unknown]
  - Mood swings [Unknown]
  - Mental disorder [Unknown]
  - Tongue discolouration [Not Recovered/Not Resolved]
  - Agitation [Unknown]
  - Irritability [Unknown]

NARRATIVE: CASE EVENT DATE: 201702
